FAERS Safety Report 10511166 (Version 1)
Quarter: 2014Q4

REPORT INFORMATION
  Report Type: Spontaneous
  Country: RO (occurrence: None)
  Receive Date: 20141008
  Receipt Date: 20141008
  Transmission Date: 20150528
  Serious: Yes (Hospitalization)
  Sender: FDA-Public Use
  Company Number: FK201403923

PATIENT
  Age: 60 Year
  Sex: Female

DRUGS (5)
  1. RIFAXIMIN (RIFAXIMIN) [Concomitant]
  2. IDARUBICIN HYDROCHLORIDE. [Suspect]
     Active Substance: IDARUBICIN HYDROCHLORIDE
     Indication: ACUTE MYELOID LEUKAEMIA
     Dosage: 2 CYCLES
  3. CYTARABINE (MANUFACTURER UNKNOWN) (CYTARABINE) (CYTARABINE) [Suspect]
     Active Substance: CYTARABINE
     Indication: ACUTE MYELOID LEUKAEMIA
     Dosage: 2 CYCLES
  4. ACYCLOVIR (ACYCLOVIR) [Concomitant]
     Active Substance: ACYCLOVIR
  5. COTRIMOXAZOLE (BACTRIM) [Concomitant]

REACTIONS (3)
  - Drug resistance [None]
  - Burkholderia cepacia complex sepsis [None]
  - Aplasia [None]
